FAERS Safety Report 6596853-1 (Version None)
Quarter: 2010Q1

REPORT INFORMATION
  Report Type: 
  Country: None (occurrence: None)
  Receive Date: 20100222
  Receipt Date: 20100222
  Transmission Date: 20100710
  Serious: Yes (Other)
  Sender: FDA-Public Use
  Company Number: None

PATIENT
  Age: 65 Year
  Sex: Female
  Weight: 63.5036 kg

DRUGS (1)
  1. METRONIDAZOLE [Suspect]
     Indication: GASTROINTESTINAL BACTERIAL INFECTION
     Dates: start: 20080311, end: 20080313

REACTIONS (8)
  - HAIR COLOUR CHANGES [None]
  - HEADACHE [None]
  - HEPATIC ENZYME INCREASED [None]
  - MOUTH CYST [None]
  - ORAL PAIN [None]
  - PYREXIA [None]
  - RASH [None]
  - TOOTHACHE [None]
